FAERS Safety Report 14956292 (Version 1)
Quarter: 2018Q2

REPORT INFORMATION
  Report Type: Spontaneous
  Country: US (occurrence: US)
  Receive Date: 20180531
  Receipt Date: 20180531
  Transmission Date: 20180711
  Serious: No
  Sender: FDA-Public Use
  Company Number: US-NOVEN PHARMACEUTICALS, INC.-US2017000636

PATIENT

DRUGS (6)
  1. DAYTRANA [Suspect]
     Active Substance: METHYLPHENIDATE
     Indication: ATTENTION DEFICIT/HYPERACTIVITY DISORDER
     Dosage: 10 MG, UNKNOWN
     Route: 062
     Dates: start: 2014
  2. DAYTRANA [Suspect]
     Active Substance: METHYLPHENIDATE
     Dosage: 10 MG, UNKNOWN
     Route: 062
     Dates: start: 2017
  3. DAYTRANA [Suspect]
     Active Substance: METHYLPHENIDATE
     Dosage: 10 MG (CUTTING 30 MG PATCH INTO ONE THIRD), UNKNOWN
     Route: 062
  4. LORAZEPAM. [Concomitant]
     Active Substance: LORAZEPAM
  5. DIAZEPAM. [Concomitant]
     Active Substance: DIAZEPAM
  6. TRAZODONE [Concomitant]
     Active Substance: TRAZODONE HYDROCHLORIDE
     Indication: INSOMNIA

REACTIONS (3)
  - Wrong technique in product usage process [Recovered/Resolved]
  - No adverse event [Unknown]
  - Off label use [Unknown]
